FAERS Safety Report 21000069 (Version 1)
Quarter: 2022Q2

REPORT INFORMATION
  Report Type: Spontaneous
  Country: US (occurrence: US)
  Receive Date: 20220623
  Receipt Date: 20220623
  Transmission Date: 20220721
  Serious: No
  Sender: FDA-Public Use
  Company Number: US-ORGANON-O2206USA001968

PATIENT
  Age: 24 Year

DRUGS (1)
  1. PROSCAR [Suspect]
     Active Substance: FINASTERIDE
     Indication: Alopecia
     Dosage: UNK
     Route: 048
     Dates: start: 202109, end: 202205

REACTIONS (8)
  - Anhedonia [Not Recovered/Not Resolved]
  - Libido decreased [Not Recovered/Not Resolved]
  - Feeling abnormal [Not Recovered/Not Resolved]
  - Insomnia [Not Recovered/Not Resolved]
  - Muscular weakness [Not Recovered/Not Resolved]
  - Decreased appetite [Not Recovered/Not Resolved]
  - Fatigue [Not Recovered/Not Resolved]
  - Muscle spasms [Not Recovered/Not Resolved]
